FAERS Safety Report 6696837-9 (Version None)
Quarter: 2010Q2

REPORT INFORMATION
  Report Type: 
  Country: None (occurrence: None)
  Receive Date: 20100426
  Receipt Date: 20100419
  Transmission Date: 20101027
  Serious: Yes (Hospitalization)
  Sender: FDA-Public Use
  Company Number: AU-SANOFI-AVENTIS-2010SA022870

PATIENT
  Age: 69 Year
  Sex: Male

DRUGS (7)
  1. LANTUS [Suspect]
     Route: 058
     Dates: start: 20091101
  2. PLAVIX [Concomitant]
  3. ATACAND [Concomitant]
  4. ATORVASTATIN [Concomitant]
  5. MIRTAZAPINE [Concomitant]
  6. ALPHAGAN [Concomitant]
     Route: 031
  7. LUMIGAN [Concomitant]
     Route: 031

REACTIONS (1)
  - LOWER RESPIRATORY TRACT INFECTION [None]
